FAERS Safety Report 5941756-6 (Version None)
Quarter: 2008Q4

REPORT INFORMATION
  Report Type: 
  Country: None (occurrence: None)
  Receive Date: 20081105
  Receipt Date: 20081103
  Transmission Date: 20090506
  Serious: Yes (Death)
  Sender: FDA-Public Use
  Company Number: JP-SANOFI-SYNTHELABO-F01200801682

PATIENT
  Sex: Female
  Weight: 45.2 kg

DRUGS (7)
  1. MORPHINE HCL ELIXIR [Concomitant]
     Dosage: UNK
     Dates: start: 20070913, end: 20070928
  2. BIO-THREE [Concomitant]
     Dosage: UNK
     Dates: start: 20070911, end: 20071130
  3. MAGLAX [Concomitant]
     Dosage: UNK
     Dates: start: 20070911, end: 20071130
  4. LEUCOVORIN CALCIUM [Suspect]
     Dosage: UNK
     Route: 041
  5. FLUOROURACIL [Suspect]
     Route: 042
  6. ELPLAT [Suspect]
     Indication: COLON CANCER RECURRENT
     Route: 041
  7. AVASTIN [Suspect]
     Route: 041
     Dates: start: 20080327, end: 20080327

REACTIONS (1)
  - DISEASE PROGRESSION [None]
